FAERS Safety Report 8400885-8 (Version None)
Quarter: 2012Q2

REPORT INFORMATION
  Report Type: 
  Country: None (occurrence: None)
  Receive Date: 20120601
  Receipt Date: 20120521
  Transmission Date: 20120825
  Serious: Yes (Hospitalization, Other)
  Sender: FDA-Public Use
  Company Number: JP-AMGEN-JPNSP2012032966

PATIENT
  Sex: Female

DRUGS (2)
  1. ENBREL [Suspect]
     Dosage: 25 MG, EVERY 2 WEEKS
     Route: 058
  2. ENBREL [Suspect]
     Indication: PRODUCT USED FOR UNKNOWN INDICATION
     Dosage: 25 MG, WEEKLY
     Route: 058

REACTIONS (11)
  - DECREASED APPETITE [None]
  - BLOOD PRESSURE INCREASED [None]
  - HEADACHE [None]
  - CONSTIPATION [None]
  - DEFORMITY [None]
  - HERPES ZOSTER [None]
  - JOINT INJURY [None]
  - FOOT FRACTURE [None]
  - ARTHRALGIA [None]
  - OEDEMA [None]
  - GAIT DISTURBANCE [None]
